FAERS Safety Report 8447255-4 (Version None)
Quarter: 2012Q2

REPORT INFORMATION
  Report Type: 
  Country: None (occurrence: None)
  Receive Date: 20120619
  Receipt Date: 20120613
  Transmission Date: 20120825
  Serious: No
  Sender: FDA-Public Use
  Company Number: US-PFIZER INC-2012143510

PATIENT
  Sex: Female

DRUGS (3)
  1. HYDROCORTISONE [Suspect]
     Indication: PITUITARY TUMOUR
     Dosage: UNK
  2. SOMAVERT [Suspect]
     Indication: BRAIN NEOPLASM
     Dosage: 30 MG, 1X/DAY
  3. LASIX [Concomitant]
     Indication: FLUID RETENTION
     Dosage: UNK

REACTIONS (2)
  - WEIGHT INCREASED [None]
  - HEADACHE [None]
